FAERS Safety Report 5396296-2 (Version None)
Quarter: 2007Q3

REPORT INFORMATION
  Report Type: 
  Country: None (occurrence: None)
  Receive Date: 20070725
  Receipt Date: 20070717
  Transmission Date: 20080115
  Serious: Yes (Hospitalization)
  Sender: FDA-Public Use
  Company Number: US-JNJFOC-20070704565

PATIENT
  Sex: Female
  Weight: 76.2 kg

DRUGS (5)
  1. DURAGESIC-100 [Suspect]
     Indication: PAIN
     Route: 062
  2. OXYCONTIN [Concomitant]
     Indication: PAIN
     Route: 048
  3. IBUPROFEN [Concomitant]
     Indication: INFLAMMATION
     Route: 048
  4. GABAPENTIN [Concomitant]
     Indication: NEURALGIA
     Route: 048
  5. THEOPHYLLINE [Concomitant]
     Indication: ASTHMA
     Route: 048

REACTIONS (5)
  - ANXIETY [None]
  - BACK PAIN [None]
  - DYSPNOEA [None]
  - INFLAMMATION [None]
  - MENORRHAGIA [None]
